FAERS Safety Report 17378502 (Version 1)
Quarter: 2020Q1

REPORT INFORMATION
  Report Type: Spontaneous
  Country: US (occurrence: US)
  Receive Date: 20200122
  Receipt Date: 20200122
  Transmission Date: 20200409
  Serious: Yes (Hospitalization)
  Sender: FDA-Public Use
  Company Number: None

PATIENT
  Age: 23 Year
  Sex: Female

DRUGS (5)
  1. OMEPRAZOLE. [Concomitant]
     Active Substance: OMEPRAZOLE
  2. AZELASTINE SPR [Concomitant]
  3. SALINE NASAL SPRAY [Concomitant]
     Active Substance: SODIUM CHLORIDE
  4. AZITHROMYCIN TAB [Concomitant]
  5. PULMOZYME [Suspect]
     Active Substance: DORNASE ALFA
     Indication: CYSTIC FIBROSIS
     Route: 055
     Dates: start: 20190205

REACTIONS (2)
  - Influenza [None]
  - Nasopharyngitis [None]

NARRATIVE: CASE EVENT DATE: 20191207
